FAERS Safety Report 12839457 (Version 3)
Quarter: 2017Q4

REPORT INFORMATION
  Report Type: Spontaneous
  Country: US (occurrence: US)
  Receive Date: 20161012
  Receipt Date: 20171107
  Transmission Date: 20180320
  Serious: Yes (Other)
  Sender: FDA-Public Use
  Company Number: US-INCYTE CORPORATION-2016IN006232

PATIENT

DRUGS (7)
  1. JAKAFI [Suspect]
     Active Substance: RUXOLITINIB
     Dosage: 10 MG Q AM, 5 MG Q PM
  2. JAKAFI [Suspect]
     Active Substance: RUXOLITINIB
     Dosage: 15 MG, BID (3 X 5 MG TABLETS)
     Route: 048
  3. DIGOXIN. [Concomitant]
     Active Substance: DIGOXIN
     Indication: PRODUCT USED FOR UNKNOWN INDICATION
  4. JAKAFI [Suspect]
     Active Substance: RUXOLITINIB
     Indication: MYELOFIBROSIS
     Dosage: 5 MG, BID
     Dates: start: 20160903
  5. LORAZEPAM. [Concomitant]
     Active Substance: LORAZEPAM
     Indication: PRODUCT USED FOR UNKNOWN INDICATION
  6. BISOPROLOL [Concomitant]
     Active Substance: BISOPROLOL
     Indication: PRODUCT USED FOR UNKNOWN INDICATION
  7. JAKAFI [Suspect]
     Active Substance: RUXOLITINIB
     Dosage: 10MG (2 X 5MG), BID
     Route: 048

REACTIONS (10)
  - Back pain [Recovering/Resolving]
  - Weight increased [Unknown]
  - Fatigue [Unknown]
  - Splenomegaly [Unknown]
  - Asthenia [Unknown]
  - Platelet count decreased [Unknown]
  - Dry mouth [Unknown]
  - Bleeding time prolonged [Unknown]
  - Decreased appetite [Unknown]
  - Dizziness [Unknown]

NARRATIVE: CASE EVENT DATE: 2017
